FAERS Safety Report 8564771-5 (Version None)
Quarter: 2012Q3

REPORT INFORMATION
  Report Type: 
  Country: None (occurrence: None)
  Receive Date: 20120803
  Receipt Date: 20120725
  Transmission Date: 20120928
  Serious: Yes (Hospitalization)
  Sender: FDA-Public Use
  Company Number: US-BAYER-2012-076189

PATIENT
  Age: 50 Year
  Sex: Female

DRUGS (17)
  1. DOCOSAHEXANOIC ACID/EICOSAPENTAENOIC ACID [Concomitant]
     Dosage: 1200 MG, DAILY
     Route: 048
     Dates: start: 20100413
  2. YASMIN [Suspect]
     Dosage: UNK
     Dates: start: 20091023, end: 20100416
  3. MELOXICAM [Concomitant]
     Indication: FIBROMYALGIA
     Dosage: 15 MG, DAILY
     Route: 048
     Dates: start: 20100413
  4. ENALAPRIL MALEATE [Concomitant]
     Indication: HYPERTENSION
     Dosage: 5 MG, DAILY
     Route: 048
     Dates: start: 20100413
  5. ATENOLOL [Concomitant]
     Indication: HYPERTENSION
     Dosage: 50 MG, DAILY
     Route: 048
     Dates: start: 20100413
  6. GABAPENTIN [Concomitant]
     Indication: FIBROMYALGIA
     Dosage: 100 MG, TID
     Route: 048
     Dates: start: 20100413
  7. OMEPRAZOLE [Concomitant]
     Indication: GASTROOESOPHAGEAL REFLUX DISEASE
     Dosage: 20 MG, DAILY
     Route: 048
     Dates: start: 20100413
  8. CITALOPRAM HYDROBROMIDE [Concomitant]
     Dosage: 60 MG, DAILY
     Route: 048
     Dates: start: 20100413
  9. VESICARE [Concomitant]
     Dosage: 5 MG, UNK
     Route: 048
  10. MULTI-VITAMINS [Concomitant]
     Dosage: 1 DF, DAILY
     Route: 048
     Dates: start: 20100413
  11. CALCIUM D3 [CALCIUM CARBONATE,COLECALCIFEROL] [Concomitant]
     Dosage: 1250/200 UNIT TABLET, DAILY
     Route: 048
     Dates: start: 20100413
  12. YAZ [Suspect]
     Indication: MENSTRUATION IRREGULAR
     Dosage: UNK
     Dates: start: 20091023
  13. YAZ [Suspect]
     Indication: HORMONE LEVEL ABNORMAL
  14. MELOXICAM [Concomitant]
     Dosage: 7.5 MG, ONCE
     Route: 048
     Dates: start: 20100413
  15. ZOLPIDEM [Concomitant]
     Dosage: 10 MG, HS DAILY
     Route: 048
     Dates: start: 20100413
  16. CYCLOBENZAPRINE [Concomitant]
     Dosage: 10 MG, UNK
     Route: 048
  17. PRAZOSIN [Concomitant]
     Dosage: 1 MG, UNK
     Route: 048

REACTIONS (5)
  - INTRACRANIAL VENOUS SINUS THROMBOSIS [None]
  - HEADACHE [None]
  - NAUSEA [None]
  - VISION BLURRED [None]
  - VOMITING [None]
